FAERS Safety Report 6506742-6 (Version None)
Quarter: 2009Q4

REPORT INFORMATION
  Report Type: 
  Country: None (occurrence: None)
  Receive Date: 20091221
  Receipt Date: 20091211
  Transmission Date: 20100525
  Serious: Yes (Hospitalization)
  Sender: FDA-Public Use
  Company Number: US-ALEXION-A200900993

PATIENT
  Sex: Female

DRUGS (5)
  1. SOLIRIS 300MG [Suspect]
     Indication: PAROXYSMAL NOCTURNAL HAEMOGLOBINURIA
     Dosage: 600 MG, WEEKLY FOR 4 WEEKS
     Route: 042
     Dates: start: 20091005, end: 20091026
  2. SOLIRIS 300MG [Suspect]
     Dosage: 900 MG EVERY 2 WEEKS
     Route: 042
     Dates: start: 20091101
  3. SYNTHROID [Concomitant]
     Indication: HYPOTHYROIDISM
     Dosage: 88 UG, QD
  4. BONIVA [Concomitant]
     Indication: OSTEOPOROSIS PROPHYLAXIS
     Dosage: ONCE A MONTH
  5. FOLIC ACID [Concomitant]
     Indication: PAROXYSMAL NOCTURNAL HAEMOGLOBINURIA
     Dosage: 5 MG, QD

REACTIONS (2)
  - CHEST DISCOMFORT [None]
  - CHEST PAIN [None]
